FAERS Safety Report 10068442 (Version 1)
Quarter: 2014Q2

REPORT INFORMATION
  Report Type: Spontaneous
  Country: FR (occurrence: FR)
  Receive Date: 20140409
  Receipt Date: 20140409
  Transmission Date: 20141212
  Serious: Yes (Hospitalization)
  Sender: FDA-Public Use
  Company Number: FR-ASTRAZENECA-2014SE23806

PATIENT
  Age: 32402 Day
  Sex: Male

DRUGS (25)
  1. INEXIUM [Suspect]
     Indication: PROPHYLAXIS AGAINST GASTROINTESTINAL ULCER
     Route: 048
     Dates: start: 20140304
  2. CONTRAMAL [Suspect]
     Indication: BACK PAIN
     Route: 048
     Dates: start: 20140303, end: 20140309
  3. CONTRAMAL [Suspect]
     Indication: BACK PAIN
     Dosage: SR 50 MG TWO TIMES DAILY (IN ADDITION OF CONTRAMAL)
     Route: 048
     Dates: start: 20140304, end: 20140309
  4. TEMESTA [Suspect]
     Route: 048
  5. CETIRIZINE [Suspect]
     Indication: HYPERSENSITIVITY
     Route: 048
     Dates: start: 20140304, end: 20140308
  6. FORTRANS [Concomitant]
     Dosage: HALF LITER ON THE FIRST DAY AND ONE LITER DAILY AFTER
     Route: 048
     Dates: start: 20140303, end: 20140305
  7. NAFTIDROFURYL [Concomitant]
  8. CORVASAL [Concomitant]
  9. SEREVENT DISKUS [Concomitant]
     Dosage: TWO TIMES A DAY
  10. IPRATROPIUM [Concomitant]
  11. TERBUTALINE [Concomitant]
  12. AMLODIPINE [Concomitant]
  13. PLAVIX [Concomitant]
  14. BUDESONIDE [Concomitant]
  15. PARIET [Concomitant]
  16. XYZALL [Concomitant]
  17. ACEBUTOLOL [Concomitant]
  18. ENALAPRIL [Concomitant]
     Dosage: 1 DOSAGE FORM/HALF DOSAGE FORM ALTERNATING EVERY OTHER DAY
  19. AMLOR [Concomitant]
  20. TAHOR [Concomitant]
  21. PRAXILENE [Concomitant]
  22. MOLSIDOMINE [Concomitant]
  23. BRICANYL [Concomitant]
     Dosage: TWO TIMES A DAY
  24. ATROVENT [Concomitant]
  25. PULMICORT [Concomitant]
     Dosage: ONE TIME A DAY

REACTIONS (2)
  - Disturbance in attention [Unknown]
  - Confusional state [Unknown]
